FAERS Safety Report 13931066 (Version 2)
Quarter: 2018Q1

REPORT INFORMATION
  Report Type: Report from Study
  Country: None (occurrence: CO)
  Receive Date: 20170902
  Receipt Date: 20180209
  Transmission Date: 20180508
  Serious: Yes (Other)
  Sender: FDA-Public Use
  Company Number: CO-ABBVIE-17K-036-2091137-00

PATIENT
  Age: 47 Year
  Sex: Male
  Weight: 52 kg

DRUGS (1)
  1. HUMIRA [Suspect]
     Active Substance: ADALIMUMAB
     Indication: ANKYLOSING SPONDYLITIS
     Route: 058
     Dates: start: 20120302, end: 201708

REACTIONS (3)
  - Drug ineffective [Unknown]
  - Arthralgia [Recovering/Resolving]
  - Hand deformity [Recovering/Resolving]

NARRATIVE: CASE EVENT DATE: 20120302
